FAERS Safety Report 16141050 (Version 1)
Quarter: 2019Q2

REPORT INFORMATION
  Report Type: Spontaneous
  Country: US (occurrence: US)
  Receive Date: 20190401
  Receipt Date: 20190401
  Transmission Date: 20190711
  Serious: No
  Sender: FDA-Public Use
  Company Number: US-PFIZER INC-2019129380

PATIENT
  Age: 38 Year
  Sex: Female

DRUGS (1)
  1. EUCRISA [Suspect]
     Active Substance: CRISABOROLE
     Dosage: UNK, 2X/DAY (APPLY TO AFFECTED AREAS TWICE DAILY FOR 2 TO 3 DAYS AND ALTERNATE WITH TOPICORT AS DIRE

REACTIONS (3)
  - Skin disorder [Not Recovered/Not Resolved]
  - Application site rash [Unknown]
  - Application site pain [Unknown]
